FAERS Safety Report 6736467-3 (Version None)
Quarter: 2010Q2

REPORT INFORMATION
  Report Type: 
  Country: None (occurrence: None)
  Receive Date: 20100521
  Receipt Date: 20100519
  Transmission Date: 20101027
  Serious: Yes (Hospitalization, Other)
  Sender: FDA-Public Use
  Company Number: DK-BRISTOL-MYERS SQUIBB COMPANY-15012610

PATIENT
  Age: 45 Year
  Sex: Male
  Weight: 65 kg

DRUGS (3)
  1. REYATAZ [Suspect]
     Indication: HIV INFECTION
     Route: 048
     Dates: start: 20081201, end: 20100226
  2. NORVIR [Concomitant]
     Indication: HIV INFECTION
  3. KIVEXA [Concomitant]
     Indication: HIV INFECTION

REACTIONS (3)
  - BLOOD CREATININE INCREASED [None]
  - HYPERURICAEMIA [None]
  - NEPHROLITHIASIS [None]
